FAERS Safety Report 9245493 (Version 2)
Quarter: 2013Q3

REPORT INFORMATION
  Report Type: Spontaneous
  Country: US (occurrence: US)
  Receive Date: 20130422
  Receipt Date: 20130816
  Transmission Date: 20140515
  Serious: Yes (Hospitalization)
  Sender: FDA-Public Use
  Company Number: US-ROCHE-1216889

PATIENT
  Sex: Female

DRUGS (7)
  1. RITUXAN [Suspect]
     Indication: RHEUMATOID ARTHRITIS
     Route: 042
  2. PREDNISONE [Concomitant]
     Indication: RHEUMATOID ARTHRITIS
     Route: 048
  3. PRIMIDONE [Concomitant]
     Indication: ESSENTIAL TREMOR
     Route: 065
  4. PROPRANOLOL [Concomitant]
     Route: 048
  5. CELEXA (UNITED STATES) [Concomitant]
     Indication: DEPRESSION
     Route: 065
  6. QUESTRAN [Concomitant]
     Indication: DIARRHOEA
     Route: 048
  7. COUMADIN [Concomitant]
     Indication: PULMONARY EMBOLISM
     Route: 065

REACTIONS (8)
  - Pneumonia [Unknown]
  - Flushing [Unknown]
  - Pulmonary embolism [Unknown]
  - Fall [Unknown]
  - Road traffic accident [Unknown]
  - Fibrin D dimer increased [Unknown]
  - Asthenia [Not Recovered/Not Resolved]
  - Candida infection [Unknown]
